FAERS Safety Report 5016176-1 (Version None)
Quarter: 2006Q2

REPORT INFORMATION
  Report Type: 
  Country: None (occurrence: None)
  Receive Date: 20060414
  Receipt Date: 20060213
  Transmission Date: 20061013
  Serious: No
  Sender: FDA-Public Use
  Company Number: 2006SP000739

PATIENT
  Age: 60 Year
  Sex: Female
  Weight: 81.1939 kg

DRUGS (8)
  1. LUNESTA [Suspect]
     Indication: INSOMNIA
     Dosage: 3 MG;HS;ORAL
     Route: 048
     Dates: start: 20060212
  2. GLUCOPHAGE [Concomitant]
  3. PROZAC [Concomitant]
  4. PLAVIX [Concomitant]
  5. ATORVASTATIN CALCIUM [Concomitant]
  6. LASIX [Concomitant]
  7. VICODIN [Concomitant]
  8. GEODON [Concomitant]

REACTIONS (1)
  - MIDDLE INSOMNIA [None]
